FAERS Safety Report 19575937 (Version 1)
Quarter: 2021Q3

REPORT INFORMATION
  Report Type: Spontaneous
  Country: US (occurrence: US)
  Receive Date: 20210718
  Receipt Date: 20210718
  Transmission Date: 20211014
  Serious: No
  Sender: FDA-Public Use
  Company Number: None

PATIENT
  Age: 42 Year
  Sex: Female
  Weight: 71.1 kg

DRUGS (4)
  1. ARMOUR THYROID [Suspect]
     Active Substance: THYROID, PORCINE
     Indication: AUTOIMMUNE THYROIDITIS
     Dosage: QUANTITY:90 TABLET(S);?
     Route: 048
     Dates: start: 20130707, end: 20210718
  2. LIOTHYRONINE ARMOUR THYROID [Concomitant]
  3. FISH OIL [Concomitant]
     Active Substance: FISH OIL
  4. METHYL FOLATE [Concomitant]
     Active Substance: LEVOMEFOLATE CALCIUM

REACTIONS (3)
  - Suspected product quality issue [None]
  - Drug ineffective [None]
  - Condition aggravated [None]

NARRATIVE: CASE EVENT DATE: 20210718
